FAERS Safety Report 23318628 (Version 1)
Quarter: 2023Q4

REPORT INFORMATION
  Report Type: Spontaneous
  Country: GB (occurrence: GB)
  Receive Date: 20231220
  Receipt Date: 20231220
  Transmission Date: 20240109
  Serious: Yes (Other)
  Sender: FDA-Public Use
  Company Number: None

PATIENT

DRUGS (1)
  1. LENALIDOMIDE [Suspect]
     Active Substance: LENALIDOMIDE
     Dosage: TO START ON A 2.5MG DOSE AS SOON AS DELIVERY HAS BEEN MADE ON 29/11/2023.
     Route: 065

REACTIONS (1)
  - Urticaria [Unknown]
